FAERS Safety Report 5464209-0 (Version None)
Quarter: 2007Q3

REPORT INFORMATION
  Report Type: 
  Country: None (occurrence: None)
  Receive Date: 20070921
  Receipt Date: 20070911
  Transmission Date: 20080115
  Serious: Yes (Other)
  Sender: FDA-Public Use
  Company Number: US-ELI_LILLY_AND_COMPANY-US200708006724

PATIENT
  Age: 46 Year
  Sex: Female

DRUGS (7)
  1. GLUCOPHAGE [Concomitant]
     Dosage: 500 MG, EACH MORNING
     Route: 048
  2. GLUCOPHAGE [Concomitant]
     Dosage: 1000 MG, EACH EVENING
     Route: 048
  3. MAXZIDE [Concomitant]
     Dosage: UNK D/F, EACH MORNING
     Route: 048
  4. ZOLOFT [Concomitant]
     Dosage: 50 MG, DAILY (1/D)
     Route: 048
  5. COZAAR [Concomitant]
     Dosage: 25 MG, DAILY (1/D)
     Route: 048
     Dates: start: 20070319
  6. BYETTA [Suspect]
     Dosage: 10 UG, UNKNOWN
     Route: 051
     Dates: start: 20070319, end: 20070731
  7. ASPIRIN [Concomitant]
     Dosage: 81 MG, DAILY (1/D)
     Route: 048
     Dates: end: 20070801

REACTIONS (1)
  - VAGINAL HAEMORRHAGE [None]
